FAERS Safety Report 7748330-X (Version None)
Quarter: 2011Q3

REPORT INFORMATION
  Report Type: 
  Country: None (occurrence: None)
  Receive Date: 20110913
  Receipt Date: 20110907
  Transmission Date: 20111222
  Serious: Yes (Hospitalization)
  Sender: FDA-Public Use
  Company Number: PHHO2009DE11786

PATIENT
  Sex: Male
  Weight: 94.7 kg

DRUGS (4)
  1. NEORAL [Suspect]
     Indication: RENAL TRANSPLANT
     Dosage: UNK
     Dates: end: 20090920
  2. NO TREATMENT RECEIVED [Suspect]
     Indication: RENAL TRANSPLANT
     Dosage: UNK
  3. MYFORTIC [Suspect]
     Indication: RENAL TRANSPLANT
     Dosage: UNK
     Dates: end: 20090920
  4. PREDNISONE [Suspect]

REACTIONS (4)
  - NEUROTOXICITY [None]
  - TOXICITY TO VARIOUS AGENTS [None]
  - HAEMOLYTIC URAEMIC SYNDROME [None]
  - BLOOD CREATININE INCREASED [None]
